FAERS Safety Report 24027533 (Version 1)
Quarter: 2024Q2

REPORT INFORMATION
  Report Type: Report from Study
  Country: US (occurrence: US)
  Receive Date: 20240628
  Receipt Date: 20240628
  Transmission Date: 20240716
  Serious: No
  Sender: FDA-Public Use
  Company Number: US-DECIPHERA PHARMACEUTICALS LLC-2024US000532

PATIENT
  Age: 60 Year
  Sex: Male
  Weight: 94.785 kg

DRUGS (1)
  1. QINLOCK [Suspect]
     Active Substance: RIPRETINIB
     Indication: Gastrointestinal stromal tumour
     Dosage: 50 MILLIGRAM, BID (1 TABLET IN MORNING AND 1 TABLET IN THE EVENING)
     Route: 048
     Dates: start: 20240320

REACTIONS (7)
  - Hypoaesthesia [Unknown]
  - Pain in extremity [Unknown]
  - Rash [Unknown]
  - Hypertension [Unknown]
  - Dry skin [Unknown]
  - Prescribed underdose [Unknown]
  - Inappropriate schedule of product administration [Unknown]

NARRATIVE: CASE EVENT DATE: 20240101
